FAERS Safety Report 6628878-1 (Version None)
Quarter: 2010Q1

REPORT INFORMATION
  Report Type: 
  Country: None (occurrence: None)
  Receive Date: 20100311
  Receipt Date: 20100309
  Transmission Date: 20100710
  Serious: Yes (Death)
  Sender: FDA-Public Use
  Company Number: GXKR2010DE02732

PATIENT
  Age: 65 Year
  Sex: Female
  Weight: 120 kg

DRUGS (5)
  1. METFORMIN HCL [Suspect]
     Indication: TYPE 2 DIABETES MELLITUS
     Dosage: UNK
     Route: 048
     Dates: start: 20090101
  2. IBUPROFEN (NGX) [Suspect]
     Indication: BONE PAIN
     Dosage: 600 MG, UNK
     Route: 048
     Dates: start: 20090101
  3. LANTUS [Concomitant]
     Dosage: UNK
     Route: 058
  4. OMEPRAZOLE [Concomitant]
  5. PREGABALIN [Concomitant]

REACTIONS (1)
  - METABOLIC ACIDOSIS [None]
